FAERS Safety Report 18522134 (Version 5)
Quarter: 2022Q1

REPORT INFORMATION
  Report Type: Report from Study
  Country: US (occurrence: US)
  Receive Date: 20201119
  Receipt Date: 20220218
  Transmission Date: 20220423
  Serious: Yes (Other)
  Sender: FDA-Public Use
  Company Number: None

PATIENT
  Sex: Female

DRUGS (3)
  1. COSENTYX [Suspect]
     Active Substance: SECUKINUMAB
     Indication: Psoriasis
     Dosage: 300 MG, QW
     Route: 058
  2. COSENTYX [Suspect]
     Active Substance: SECUKINUMAB
     Dosage: 150 MG, QW
     Route: 065
  3. COSENTYX [Suspect]
     Active Substance: SECUKINUMAB
     Dosage: 300 MG, QW
     Route: 065
     Dates: start: 20220114

REACTIONS (8)
  - Lung carcinoma cell type unspecified stage I [Unknown]
  - Cardiac failure [Unknown]
  - Immune system disorder [Unknown]
  - Pruritus [Unknown]
  - Visual impairment [Unknown]
  - Syringe issue [Unknown]
  - Device defective [Unknown]
  - Accidental exposure to product [Unknown]
